FAERS Safety Report 23386753 (Version 1)
Quarter: 2024Q1

REPORT INFORMATION
  Report Type: Spontaneous
  Country: BG (occurrence: BG)
  Receive Date: 20240110
  Receipt Date: 20240110
  Transmission Date: 20240409
  Serious: Yes (Other)
  Sender: FDA-Public Use
  Company Number: BG-ROCHE-3472339

PATIENT

DRUGS (11)
  1. GOSERELIN [Suspect]
     Active Substance: GOSERELIN
     Indication: HER2 positive breast cancer
     Dosage: 3.6 MILLIGRAM, EVERY 4 WEEKS
     Route: 058
     Dates: start: 20170331
  2. ZOLADEX [Suspect]
     Active Substance: GOSERELIN ACETATE
     Indication: HER2 positive breast cancer
     Dosage: UNK
     Route: 065
  3. XELODA [Suspect]
     Active Substance: CAPECITABINE
     Indication: HER2 positive breast cancer
     Dosage: 1250 MICROGRAM, EVERY 3 WEEKS
     Route: 048
     Dates: start: 20170331, end: 20170623
  4. TAXOTERE [Suspect]
     Active Substance: DOCETAXEL
     Indication: HER2 positive breast cancer
     Dosage: 75 MILLIGRAM/SQ. METER, EVERY 3 WEEKS
     Route: 040
     Dates: start: 20170127, end: 20170310
  5. HERCEPTIN [Suspect]
     Active Substance: TRASTUZUMAB
     Indication: HER2 positive breast cancer
     Dosage: MOST RECENT DOSE PRIOR TO THE EVENT: 27/JAN/2017
     Route: 040
     Dates: start: 20170127, end: 20190621
  6. HERCEPTIN [Suspect]
     Active Substance: TRASTUZUMAB
     Dosage: 600 MILLIGRAM, EVERY 3 WEEKS
     Route: 058
     Dates: start: 20190712
  7. FLUOROPLEX [Suspect]
     Active Substance: FLUOROURACIL
     Indication: HER2 positive breast cancer
     Dosage: 500 MILLIGRAM/SQ. METER, EVERY 3 WEEKS
     Route: 040
     Dates: end: 20270310
  8. FLUOROPLEX [Suspect]
     Active Substance: FLUOROURACIL
     Dosage: 500 MILLIGRAM/SQ. METER, EVERY 3 WEEKS
     Route: 040
     Dates: start: 20161124, end: 20170106
  9. CYTOXAN [Suspect]
     Active Substance: CYCLOPHOSPHAMIDE
     Indication: HER2 positive breast cancer
     Dosage: 500 MILLIGRAM/SQ. METER, EVERY 3 WEEKS
     Route: 040
     Dates: start: 20161124, end: 20161124
  10. ELLENCE [Suspect]
     Active Substance: EPIRUBICIN HYDROCHLORIDE
     Indication: HER2 positive breast cancer
     Dosage: 75 MILLIGRAM/SQ. METER, EVERY 3 WEEKS
     Route: 040
     Dates: start: 20161124, end: 20161124
  11. XGEVA [Concomitant]
     Active Substance: DENOSUMAB
     Indication: Metastases to bone
     Dosage: UNK
     Route: 062
     Dates: start: 20170331

REACTIONS (1)
  - Skin toxicity [Recovered/Resolved]

NARRATIVE: CASE EVENT DATE: 20170428
